FAERS Safety Report 5412412-8 (Version None)
Quarter: 2007Q3

REPORT INFORMATION
  Report Type: 
  Country: None (occurrence: None)
  Receive Date: 20070813
  Receipt Date: 20070727
  Transmission Date: 20080115
  Serious: Yes (Disabling, Other)
  Sender: FDA-Public Use
  Company Number: US-MERCK-0707USA04703

PATIENT
  Sex: Male

DRUGS (1)
  1. ZOCOR [Suspect]
     Route: 048

REACTIONS (6)
  - ABASIA [None]
  - APHASIA [None]
  - DYSKINESIA [None]
  - HALLUCINATION [None]
  - MENTAL IMPAIRMENT [None]
  - NERVOUSNESS [None]
